FAERS Safety Report 5066394-1 (Version None)
Quarter: 2006Q3

REPORT INFORMATION
  Report Type: 
  Country: None (occurrence: None)
  Receive Date: 20060728
  Receipt Date: 20060728
  Transmission Date: 20061208
  Serious: Yes (Other)
  Sender: FDA-Public Use
  Company Number: None

PATIENT
  Age: 50 Year
  Sex: Male

DRUGS (2)
  1. PEGASYS [Suspect]
     Indication: HEPATITIS C
     Dosage: 180 MCG, RECEIVED 42 OF 48 WEEKLY DOSES
  2. COPEGUS [Concomitant]

REACTIONS (8)
  - CHEST PAIN [None]
  - GRANULOMA [None]
  - INTERSTITIAL LUNG DISEASE [None]
  - PNEUMONITIS [None]
  - PRODUCTIVE COUGH [None]
  - PYREXIA [None]
  - RESTRICTIVE PULMONARY DISEASE [None]
  - SPUTUM DISCOLOURED [None]
